FAERS Safety Report 14583166 (Version 1)
Quarter: 2018Q1

REPORT INFORMATION
  Report Type: Spontaneous
  Country: US (occurrence: US)
  Receive Date: 20180227
  Receipt Date: 20180227
  Transmission Date: 20180509
  Serious: Yes (Other)
  Sender: FDA-Public Use
  Company Number: None

PATIENT
  Age: 82 Year
  Sex: Female
  Weight: 86.18 kg

DRUGS (13)
  1. DORZOMIDE HCI [Concomitant]
  2. OMEGA 3 KRILL OIL [Concomitant]
  3. LUMIGAN [Concomitant]
     Active Substance: BIMATOPROST
  4. LANTUS [Concomitant]
     Active Substance: INSULIN GLARGINE
  5. VITAMIN C [Concomitant]
     Active Substance: ASCORBIC ACID
  6. ACETAMINOPHEN + PM [Concomitant]
  7. CLOPIDOGREL TAB, 75 MG (GENERIC FOR PLAVIX) [Suspect]
     Active Substance: CLOPIDOGREL BISULFATE
     Indication: TYPE 2 DIABETES MELLITUS
     Dosage: FREQUENCY - ONE IN AM
     Route: 048
     Dates: start: 199001
  8. ATORVASTATIN [Concomitant]
     Active Substance: ATORVASTATIN
  9. VERAPAMIL [Concomitant]
     Active Substance: VERAPAMIL HYDROCHLORIDE
  10. LISINOPRIL/HCTZ [Concomitant]
     Active Substance: HYDROCHLOROTHIAZIDE\LISINOPRIL
  11. NOVOLOG PEN INSULIN [Concomitant]
  12. LEVOTHYROXIN [Concomitant]
     Active Substance: LEVOTHYROXINE
  13. CLOBETASOL CREAM [Concomitant]
     Active Substance: CLOBETASOL

REACTIONS (3)
  - Contusion [None]
  - Blood blister [None]
  - Haemorrhage [None]

NARRATIVE: CASE EVENT DATE: 2013
